FAERS Safety Report 10728949 (Version 2)
Quarter: 2015Q1

REPORT INFORMATION
  Report Type: Spontaneous
  Country: US (occurrence: US)
  Receive Date: 20150122
  Receipt Date: 20150224
  Transmission Date: 20150721
  Serious: No
  Sender: FDA-Public Use
  Company Number: US-PFIZER INC-2015021168

PATIENT
  Age: 72 Year
  Sex: Female
  Weight: 64 kg

DRUGS (6)
  1. OSTEO BI-FLEX [Concomitant]
     Active Substance: CHONDROITIN SULFATE A\GLUCOSAMINE
  2. CELEBREX [Suspect]
     Active Substance: CELECOXIB
     Indication: OSTEOARTHRITIS
     Dosage: 100 MG 12 HOURS APART, 2X/DAY
  3. OCUVITE [Concomitant]
     Active Substance: VITAMINS
     Dosage: 1 DF, 1X/DAY IN THE MORNING
  4. METHYLSULFONYLMETHANE [Concomitant]
     Active Substance: DIMETHYL SULFONE
     Dosage: 2 DF, 2X/DAY
  5. MULTIVITAMINS [Concomitant]
     Active Substance: VITAMINS
     Dosage: 1 DF, DAILY
  6. TRAMADOL [Concomitant]
     Active Substance: TRAMADOL
     Dosage: 50 MG, 2X/DAY

REACTIONS (4)
  - Body height decreased [Unknown]
  - Osteoarthritis [Unknown]
  - Spinal disorder [Unknown]
  - Cataract [Unknown]

NARRATIVE: CASE EVENT DATE: 2014
